FAERS Safety Report 10658068 (Version 1)
Quarter: 2014Q4

REPORT INFORMATION
  Report Type: Spontaneous
  Country: US (occurrence: None)
  Receive Date: 20141205
  Receipt Date: 20141205
  Transmission Date: 20150529
  Serious: No
  Sender: FDA-Public Use
  Company Number: USA-2014102238

PATIENT
  Age: 73 Year
  Sex: Male
  Weight: 77.1 kg

DRUGS (8)
  1. MULTIVITAMINS (ERGOCALCIFEROL, ASCORBIC ACID) [Concomitant]
  2. NEXIUM [Concomitant]
     Active Substance: ESOMEPRAZOLE MAGNESIUM
  3. AMOXICILLIN (AMOXICILLIN) [Concomitant]
     Active Substance: AMOXICILLIN
  4. ZOMETA [Concomitant]
     Active Substance: ZOLEDRONIC ACID
  5. EFFEXOR (VENLAFAXINE HYDROCHLORIDE) [Concomitant]
  6. LIPITOR [Concomitant]
     Active Substance: ATORVASTATIN CALCIUM
  7. POMALYST [Suspect]
     Active Substance: POMALIDOMIDE
     Indication: PLASMA CELL MYELOMA
     Dosage: 4 MG, 21 IN 21 D
     Route: 048
     Dates: start: 201304
  8. CLARINEX (PSEUDOEPHEDRINE SULFATE, LORATADINE) [Concomitant]

REACTIONS (1)
  - Disturbance in attention [None]
